FAERS Safety Report 6060478-7 (Version None)
Quarter: 2009Q1

REPORT INFORMATION
  Report Type: 
  Country: None (occurrence: None)
  Receive Date: 20090121
  Receipt Date: 20080701
  Transmission Date: 20090719
  Serious: Yes (Other)
  Sender: FDA-Public Use
  Company Number: US-WYE-H04795108

PATIENT
  Age: 57 Year
  Sex: Female

DRUGS (9)
  1. PREMPRO [Suspect]
  2. CENESTIN [Suspect]
  3. CYCRIN [Suspect]
  4. ESTRADERM [Suspect]
  5. LOESTRIN 1.5/30 [Suspect]
  6. MEDROXYPROGESTERONE [Suspect]
  7. PREMARIN [Suspect]
  8. PROMETRIUM [Suspect]
  9. PROVERA [Suspect]

REACTIONS (1)
  - BREAST CANCER [None]
